FAERS Safety Report 9321917 (Version 3)
Quarter: 2013Q2

REPORT INFORMATION
  Report Type: Spontaneous
  Country: DE (occurrence: CH)
  Receive Date: 20130531
  Receipt Date: 20130614
  Transmission Date: 20140414
  Serious: Yes (Hospitalization)
  Sender: FDA-Public Use
  Company Number: CH-FRI-1000045501

PATIENT
  Sex: Male

DRUGS (11)
  1. ROFLUMILAST [Suspect]
     Dosage: 500 MCG
     Route: 048
     Dates: start: 20130319, end: 201303
  2. SORTIS [Suspect]
     Dosage: 20 MG
     Route: 048
     Dates: start: 2004
  3. PLAVIX [Concomitant]
     Dosage: 75 MG
     Route: 048
  4. PROCORALAN [Concomitant]
     Route: 048
     Dates: start: 20130321
  5. TRIATEC [Concomitant]
     Dosage: 2.5 MG
     Route: 048
  6. EFEXOR [Concomitant]
     Dosage: 75 MG
     Route: 048
  7. TRANXILIUM [Concomitant]
     Route: 048
  8. VANNAIR [Concomitant]
     Dosage: 4 DF
     Route: 055
  9. SPIRIVA [Concomitant]
     Dosage: 18 MCG
     Route: 055
  10. SALBUTAMOL SULFATE [Concomitant]
     Dosage: 4 DF
     Route: 055
  11. ATROVENT [Concomitant]
     Dosage: 4 DF
     Route: 055

REACTIONS (2)
  - Blood creatine phosphokinase increased [Recovered/Resolved]
  - Supraventricular tachycardia [Unknown]
